FAERS Safety Report 15576359 (Version 1)
Quarter: 2018Q4

REPORT INFORMATION
  Report Type: Spontaneous
  Country: US (occurrence: US)
  Receive Date: 20181101
  Receipt Date: 20181101
  Transmission Date: 20190205
  Serious: Yes (Hospitalization)
  Sender: FDA-Public Use
  Company Number: PHEH2018US046241

PATIENT
  Age: 30 Year
  Sex: Male
  Weight: 88.44 kg

DRUGS (3)
  1. COMPAZINE [Concomitant]
     Active Substance: PROCHLORPERAZINE MALEATE
     Indication: NAUSEA
     Route: 065
  2. ZOFRAN [Suspect]
     Active Substance: ONDANSETRON HYDROCHLORIDE
     Indication: NAUSEA
     Dosage: UNK
     Route: 065
     Dates: start: 20181020
  3. ASCIMINIB [Concomitant]
     Indication: ACUTE LYMPHOCYTIC LEUKAEMIA
     Dosage: 200 MG, BID
     Route: 048
     Dates: start: 20180830, end: 20181023

REACTIONS (3)
  - Hydrocephalus [Recovering/Resolving]
  - Concomitant disease aggravated [Unknown]
  - Mental status changes [Unknown]

NARRATIVE: CASE EVENT DATE: 20181023
